FAERS Safety Report 22282676 (Version 1)
Quarter: 2023Q2

REPORT INFORMATION
  Report Type: Spontaneous
  Country: IT (occurrence: IT)
  Receive Date: 20230504
  Receipt Date: 20230504
  Transmission Date: 20230722
  Serious: Yes (Death, Other)
  Sender: FDA-Public Use
  Company Number: IT-STRIDES ARCOLAB LIMITED-2023SP006564

PATIENT
  Age: 71 Year
  Sex: Female

DRUGS (8)
  1. PREDNISOLONE [Suspect]
     Active Substance: PREDNISOLONE
     Indication: Diffuse large B-cell lymphoma stage III
     Dosage: 100 MILLIGRAM; R-CHOP-21 + 2R THERAPY; ON DAYS 1-5 ADMINISTERED EVERY 21 DAYS SCHEDULED FOR SIX COUR
     Route: 048
  2. DOXORUBICIN [Suspect]
     Active Substance: DOXORUBICIN
     Indication: Diffuse large B-cell lymphoma stage III
     Dosage: 50 MILLIGRAM/SQ. METER; R-CHOP-21 + 2R THERAPY; ON DAY 1 ADMINISTERED EVERY 21 DAYS SCHEDULED FOR SI
     Route: 042
  3. CYCLOPHOSPHAMIDE [Suspect]
     Active Substance: CYCLOPHOSPHAMIDE
     Indication: Diffuse large B-cell lymphoma stage III
     Dosage: 750 MILLIGRAM/SQ. METER; R-CHOP-21 + 2R THERAPY; ON DAY 1 ADMINISTERED EVERY 21 DAYS SCHEDULED FOR S
     Route: 042
  4. VINCRISTINE [Suspect]
     Active Substance: VINCRISTINE
     Indication: Diffuse large B-cell lymphoma stage III
     Dosage: 1.4 MILLIGRAM/SQ. METER; R-CHOP-21 + 2R THERAPY; ON DAY 1 ADMINISTERED EVERY 21 DAYS SCHEDULED FOR S
     Route: 042
  5. RITUXIMAB [Suspect]
     Active Substance: RITUXIMAB
     Indication: Diffuse large B-cell lymphoma stage III
     Dosage: 375 MILLIGRAM/SQ. METER; R-CHOP-21 + 2R THERAPY; ON DAY 1 ADMINISTERED EVERY 21 DAYS SCHEDULED FOR S
     Route: 042
  6. RITUXIMAB [Suspect]
     Active Substance: RITUXIMAB
     Dosage: UNK; TWO ADDITIONAL RITUXIMAB (R-CHOP-21 + 2R), SCHEDULED FOR SIX COURSES
     Route: 042
  7. LAMIVUDINE [Concomitant]
     Active Substance: LAMIVUDINE
     Indication: Prophylaxis
     Dosage: UNK
     Route: 065
  8. LAMIVUDINE [Concomitant]
     Active Substance: LAMIVUDINE
     Indication: Hepatitis B reactivation
     Dosage: UNK
     Route: 065

REACTIONS (3)
  - Drug ineffective [Fatal]
  - Disease progression [Fatal]
  - Hepatitis B reactivation [Not Recovered/Not Resolved]
